FAERS Safety Report 8006400-5 (Version None)
Quarter: 2011Q4

REPORT INFORMATION
  Report Type: 
  Country: None (occurrence: None)
  Receive Date: 20111226
  Receipt Date: 20111101
  Transmission Date: 20120403
  Serious: Yes (Disabling, Other)
  Sender: FDA-Public Use
  Company Number: US-PURDUE-USA-2011-0079906

PATIENT
  Sex: Female

DRUGS (3)
  1. OXYCONTIN [Suspect]
     Indication: PROCEDURAL PAIN
  2. OXYCONTIN [Suspect]
     Indication: CHRONIC SINUSITIS
  3. OXYCONTIN [Suspect]
     Indication: FACIAL PAIN
     Dosage: UNK
     Dates: start: 19960101, end: 20001101

REACTIONS (4)
  - MENTAL DISORDER [None]
  - SUBSTANCE ABUSE [None]
  - DRUG DEPENDENCE [None]
  - SCHIZOPHRENIA [None]
